FAERS Safety Report 9474816 (Version 2)
Quarter: 2015Q2

REPORT INFORMATION
  Report Type: Spontaneous
  Country: US (occurrence: US)
  Receive Date: 20130823
  Receipt Date: 20150504
  Transmission Date: 20150821
  Serious: Yes (Death, Hospitalization)
  Sender: FDA-Public Use
  Company Number: PHHY2013US088570

PATIENT
  Age: 42 Year
  Sex: Female

DRUGS (2)
  1. CISPLATIN. [Suspect]
     Active Substance: CISPLATIN
     Indication: ADENOID CYSTIC CARCINOMA
     Route: 013
  2. DOXORUBICIN [Suspect]
     Active Substance: DOXORUBICIN
     Indication: ADENOID CYSTIC CARCINOMA
     Route: 042

REACTIONS (5)
  - Ischaemic stroke [Unknown]
  - Claudication of jaw muscles [Unknown]
  - Facial paresis [Unknown]
  - Adenoid cystic carcinoma [Fatal]
  - Disease recurrence [Unknown]
